FAERS Safety Report 8776703 (Version 2)
Quarter: 2013Q4

REPORT INFORMATION
  Report Type: Spontaneous
  Country: US (occurrence: US)
  Receive Date: 20120910
  Receipt Date: 20131218
  Transmission Date: 20140711
  Serious: Yes (Other)
  Sender: FDA-Public Use
  Company Number: US-AMGEN-USASP2012056682

PATIENT
  Sex: Female

DRUGS (1)
  1. NEULASTA [Suspect]
     Indication: PROPHYLAXIS
     Dosage: UNK
     Route: 058
     Dates: start: 20111215, end: 20111215

REACTIONS (3)
  - Neoplasm [Unknown]
  - Influenza like illness [Recovered/Resolved]
  - Inappropriate schedule of drug administration [Unknown]
